FAERS Safety Report 9411608 (Version 1)
Quarter: 2013Q3

REPORT INFORMATION
  Report Type: Report from Study
  Country: GB (occurrence: GB)
  Receive Date: 20130722
  Receipt Date: 20130722
  Transmission Date: 20140515
  Serious: Yes (Hospitalization)
  Sender: FDA-Public Use
  Company Number: GB-MERCK-1302GBR006085

PATIENT
  Age: 41 Year
  Sex: Male
  Weight: 84.2 kg

DRUGS (8)
  1. TEMOZOLOMIDE [Suspect]
     Indication: GLIOBLASTOMA MULTIFORME
     Dosage: 150 MG PER DAY DURING RT
     Route: 048
     Dates: start: 20130107, end: 20130211
  2. THERAPEUTIC RADIOPHARMACEUTICAL (UNSPECIFIED) [Suspect]
     Dosage: CUMULATIVE DOSE: 45 GY AND NUMBER OF FRACTIONS: 25
     Dates: start: 20130107, end: 20130208
  3. PROPRANOLOL HYDROCHLORIDE [Concomitant]
     Indication: ANXIETY
     Dosage: 40 MG, TID
     Route: 048
     Dates: start: 20120101
  4. CODEINE PHOSPHATE [Concomitant]
     Indication: PAIN
     Dosage: 60 MG, PRN
     Route: 048
     Dates: start: 20121116
  5. LAMOTRIGINE [Concomitant]
     Indication: EPILEPSY
     Dosage: 200 MG, TID
     Route: 048
     Dates: start: 20101007
  6. TEMAZEPAM [Concomitant]
     Indication: ANXIETY
     Dosage: 20 MG, QD
     Route: 048
     Dates: start: 20130116
  7. ACETAMINOPHEN [Concomitant]
     Indication: PAIN
     Dosage: 1 G, PRN
     Dates: start: 20121116
  8. CLOBAZAM [Concomitant]
     Dosage: UNK

REACTIONS (1)
  - Epilepsy [Recovered/Resolved]
